FAERS Safety Report 4970274-7 (Version None)
Quarter: 2006Q2

REPORT INFORMATION
  Report Type: 
  Country: None (occurrence: None)
  Receive Date: 20060406
  Receipt Date: 20060320
  Transmission Date: 20061013
  Serious: No
  Sender: FDA-Public Use
  Company Number: US200603005331

PATIENT
  Age: 40 Year
  Sex: Female

DRUGS (2)
  1. CYMBALTA [Suspect]
     Indication: DEPRESSION
     Dosage: SEE IMAGE, ORAL
     Route: 048
     Dates: start: 20051230, end: 20060108
  2. CYMBALTA [Suspect]
     Indication: DEPRESSION
     Dosage: SEE IMAGE, ORAL
     Route: 048
     Dates: start: 20060109, end: 20060205

REACTIONS (15)
  - ABASIA [None]
  - ABNORMAL DREAMS [None]
  - ACTIVITIES OF DAILY LIVING IMPAIRED [None]
  - DELUSIONAL PERCEPTION [None]
  - DIZZINESS [None]
  - DYSURIA [None]
  - FEELING HOT [None]
  - GENERALISED ERYTHEMA [None]
  - HEPATIC ENZYME INCREASED [None]
  - HYPERSENSITIVITY [None]
  - PALLOR [None]
  - PARAESTHESIA ORAL [None]
  - SLEEP DISORDER [None]
  - TONGUE DISORDER [None]
  - TREMOR [None]
